FAERS Safety Report 23303409 (Version 2)
Quarter: 2023Q4

REPORT INFORMATION
  Report Type: Spontaneous
  Country: US (occurrence: US)
  Receive Date: 20231215
  Receipt Date: 20231219
  Transmission Date: 20240110
  Serious: No
  Sender: FDA-Public Use
  Company Number: US-BRISTOL-MYERS SQUIBB COMPANY-2023-181613

PATIENT
  Age: 67 Year
  Sex: Male

DRUGS (1)
  1. LENALIDOMIDE [Suspect]
     Active Substance: LENALIDOMIDE
     Indication: Plasma cell myeloma
     Dosage: TAKE 1 CAPSULE (25MG) BY MOUTH ?ONCE DAILY ON DAYS 1-14 THEN 7 DAYS OFF ?FOR 21 DAY CYCLE
     Route: 048

REACTIONS (6)
  - Fatigue [Recovering/Resolving]
  - Constipation [Recovering/Resolving]
  - Off label use [Unknown]
  - Dry skin [Not Recovered/Not Resolved]
  - Somnolence [Not Recovered/Not Resolved]
  - Bone disorder [Not Recovered/Not Resolved]
